FAERS Safety Report 8433454-4 (Version None)
Quarter: 2012Q2

REPORT INFORMATION
  Report Type: 
  Country: None (occurrence: None)
  Receive Date: 20120323
  Receipt Date: 20110608
  Transmission Date: 20120825
  Serious: Yes (Hospitalization)
  Sender: FDA-Public Use
  Company Number: 163-21880-11061246

PATIENT
  Age: 66 Year
  Sex: Male

DRUGS (8)
  1. REVLIMID [Suspect]
     Indication: MULTIPLE MYELOMA
     Dosage: 25 MG, 1 IN 1 D, PO; 10-15 MG, DAILY, PO
     Route: 048
     Dates: start: 20070215
  2. REVLIMID [Suspect]
     Indication: MULTIPLE MYELOMA
     Dosage: 25 MG, 1 IN 1 D, PO; 10-15 MG, DAILY, PO
     Route: 048
     Dates: start: 20090401
  3. DEXAMETHASONE [Concomitant]
  4. GABAPENTIN [Concomitant]
  5. CYCLOBENAZAPRINE HCL (CYCLOBENAZAPRINE) [Concomitant]
  6. HYDROCODONE/ACETAMINOPHEN (REMEDEINE) [Concomitant]
  7. WARFARIN SODIUM [Concomitant]
  8. PROTONIX [Concomitant]

REACTIONS (1)
  - PNEUMONIA [None]
